FAERS Safety Report 6265071-9 (Version None)
Quarter: 2009Q3

REPORT INFORMATION
  Report Type: 
  Country: None (occurrence: None)
  Receive Date: 20090708
  Receipt Date: 20090623
  Transmission Date: 20100115
  Serious: Yes (Death, Disabling)
  Sender: FDA-Public Use
  Company Number: OSCN-NO-0906S-0314

PATIENT
  Age: 61 Year
  Sex: Male

DRUGS (8)
  1. OMNISCAN [Suspect]
     Indication: DRUG USE FOR UNKNOWN INDICATION
     Dosage: 39 ML, SINGLE DOSE, I.V.
     Route: 042
     Dates: start: 20000906, end: 20000906
  2. ALFACALCIDOL (ETALPHA) [Concomitant]
  3. EPOETIN BETA (NEORECORMON) [Concomitant]
  4. FERROUS SULFATE (FERRO DURETTER) [Concomitant]
  5. COZAAR [Concomitant]
  6. DIGOXIN ^DAK^ [Concomitant]
  7. ACETYLSALICYLIC ACID (MAGNYL ^DAK^) [Concomitant]
  8. TRAMADOL [Concomitant]

REACTIONS (9)
  - ERYTHEMA [None]
  - HYPERAESTHESIA [None]
  - JOINT CONTRACTURE [None]
  - LEG AMPUTATION [None]
  - MYOCARDIAL FIBROSIS [None]
  - NEPHROGENIC SYSTEMIC FIBROSIS [None]
  - POST PROCEDURAL COMPLICATION [None]
  - PULMONARY FIBROSIS [None]
  - SKIN EXFOLIATION [None]
